FAERS Safety Report 17564696 (Version 8)
Quarter: 2025Q4

REPORT INFORMATION
  Report Type: Report from Study
  Country: US (occurrence: US)
  Receive Date: 20200320
  Receipt Date: 20251009
  Transmission Date: 20260118
  Serious: Yes (Hospitalization)
  Sender: TAKEDA
  Company Number: US-SHIRE-US202010603

PATIENT
  Age: 8 Year
  Sex: Female
  Weight: 20 kg

DRUGS (11)
  1. HUMAN IMMUNOGLOBULIN G [Suspect]
     Active Substance: HUMAN IMMUNOGLOBULIN G
     Indication: Immunodeficiency common variable
     Dosage: 1 GRAM
  2. HUMAN IMMUNOGLOBULIN G [Suspect]
     Active Substance: HUMAN IMMUNOGLOBULIN G
     Dosage: 1 GRAM
  3. ACETAMINOPHEN [Concomitant]
     Active Substance: ACETAMINOPHEN
     Dosage: UNK
  4. DIPHENHYDRAMINE [Concomitant]
     Active Substance: DIPHENHYDRAMINE
     Dosage: UNK
  5. EPINEPHRINE [Concomitant]
     Active Substance: EPINEPHRINE
     Dosage: UNK
  6. LIDOCAINE\PRILOCAINE [Concomitant]
     Active Substance: LIDOCAINE\PRILOCAINE
     Dosage: UNK
  7. SINGULAIR [Concomitant]
     Active Substance: MONTELUKAST SODIUM
     Dosage: UNK
  8. AZITHROMYCIN [Concomitant]
     Active Substance: AZITHROMYCIN
     Dosage: UNK
  9. PULMICORT TURBUHALER [Concomitant]
     Active Substance: BUDESONIDE
     Dosage: UNK
  10. LORATADINE [Concomitant]
     Active Substance: LORATADINE
     Dosage: UNK
  11. PRILOSEC [Concomitant]
     Active Substance: OMEPRAZOLE MAGNESIUM
     Dosage: UNK

REACTIONS (11)
  - Weight decreased [Unknown]
  - Sinus disorder [Unknown]
  - Viral infection [Unknown]
  - Viral sinusitis [Unknown]
  - Infusion site discharge [Unknown]
  - COVID-19 [Unknown]
  - Multiple allergies [Unknown]
  - Rhinovirus infection [Unknown]
  - Upper respiratory tract infection [Not Recovered/Not Resolved]
  - Infusion site haemorrhage [Unknown]
  - Infusion site pain [Unknown]

NARRATIVE: CASE EVENT DATE: 20200201
